FAERS Safety Report 25878469 (Version 1)
Quarter: 2025Q4

REPORT INFORMATION
  Report Type: Spontaneous
  Country: CA (occurrence: CA)
  Receive Date: 20251003
  Receipt Date: 20251003
  Transmission Date: 20260118
  Serious: Yes (Other)
  Sender: NOVO NORDISK
  Company Number: CA-NOVOPROD-1529917

PATIENT
  Sex: Female

DRUGS (1)
  1. SAXENDA [Suspect]
     Active Substance: LIRAGLUTIDE
     Indication: Weight control
     Dosage: UNK, QD
     Route: 058
     Dates: start: 20220701, end: 20221101

REACTIONS (4)
  - Palpitations [Recovered/Resolved]
  - Nausea [Recovering/Resolving]
  - Wrong technique in product usage process [Recovered/Resolved]
  - Incorrect dose administered by product [Recovered/Resolved]

NARRATIVE: CASE EVENT DATE: 20220701
